FAERS Safety Report 9063162 (Version 1)
Quarter: 2013Q1

REPORT INFORMATION
  Report Type: Spontaneous
  Country: CA (occurrence: CA)
  Receive Date: 20130213
  Receipt Date: 20130213
  Transmission Date: 20140127
  Serious: Yes (Hospitalization)
  Sender: FDA-Public Use
  Company Number: CA-JNJFOC-20130203238

PATIENT
  Sex: 0

DRUGS (14)
  1. PARACETAMOL [Suspect]
     Route: 065
  2. PARACETAMOL [Suspect]
     Indication: PRODUCT USED FOR UNKNOWN INDICATION
     Route: 065
  3. DIURETICS [Suspect]
     Indication: PRODUCT USED FOR UNKNOWN INDICATION
     Route: 065
  4. ACE INHIBITOR NOS [Suspect]
     Indication: PRODUCT USED FOR UNKNOWN INDICATION
     Dosage: ANGIOTENSIN CONVERTING ENZYME INHIBITOR
     Route: 065
  5. ANGIOTENSIN RECEPTOR BLOCKER NOS [Suspect]
     Indication: PRODUCT USED FOR UNKNOWN INDICATION
     Dosage: ANGIOTENSIN CONVERTING ENZYME INHIBITOR
     Route: 065
  6. CORTICOSTEROIDS NOS [Concomitant]
  7. IMMUNOSUPPRESSIVE AGENTS [Concomitant]
  8. ANTIBIOTICS [Concomitant]
  9. STATINS [Concomitant]
  10. CLOPIDOGREL [Concomitant]
  11. DIGOXIN [Concomitant]
  12. ANTIARRHYTHMIC AGENTS [Concomitant]
  13. BETA BLOCKERS, NOS [Concomitant]
  14. CALCIUM CHANNEL BLOCKERS [Concomitant]

REACTIONS (1)
  - Renal failure acute [Unknown]
